FAERS Safety Report 24523775 (Version 1)
Quarter: 2024Q4

REPORT INFORMATION
  Report Type: Spontaneous
  Country: JP (occurrence: JP)
  Receive Date: 20241018
  Receipt Date: 20241018
  Transmission Date: 20250114
  Serious: No
  Sender: PFIZER
  Company Number: JP-PFIZER INC-202400277569

PATIENT

DRUGS (2)
  1. PAXLOVID [Suspect]
     Active Substance: NIRMATRELVIR\RITONAVIR
     Indication: COVID-19 pneumonia
     Dosage: UNK
  2. MIDAZOLAM [Concomitant]
     Active Substance: MIDAZOLAM
     Indication: Sedation

REACTIONS (3)
  - Off label use [Unknown]
  - Off label use [Unknown]
  - Contraindicated product administered [Unknown]
